FAERS Safety Report 4379078-X (Version None)
Quarter: 2004Q2

REPORT INFORMATION
  Report Type: 
  Country: None (occurrence: None)
  Receive Date: 20040610
  Receipt Date: 20040525
  Transmission Date: 20050107
  Serious: Yes (Hospitalization)
  Sender: FDA-Public Use
  Company Number: 198762

PATIENT
  Age: 43 Year
  Sex: Female

DRUGS (2)
  1. AVONEX ^BIOGEN^ [Suspect]
     Indication: MULTIPLE SCLEROSIS RELAPSE
     Dosage: 30 MCG QW IM
     Route: 030
     Dates: start: 20040514, end: 20040521
  2. IMOVANE [Concomitant]

REACTIONS (4)
  - DIPLOPIA [None]
  - FATIGUE [None]
  - MUSCLE SPASMS [None]
  - PAIN IN EXTREMITY [None]
